FAERS Safety Report 5315135-9 (Version None)
Quarter: 2007Q2

REPORT INFORMATION
  Report Type: 
  Country: None (occurrence: None)
  Receive Date: 20070502
  Receipt Date: 20070420
  Transmission Date: 20071010
  Serious: Yes (Hospitalization, Other)
  Sender: FDA-Public Use
  Company Number: DE-PFIZER INC-2007017300

PATIENT
  Age: 44 Year
  Sex: Female

DRUGS (4)
  1. LYRICA [Suspect]
     Indication: MULTIPLE SCLEROSIS
     Dosage: DAILY DOSE:300MG
     Route: 048
  2. LYRICA [Suspect]
     Indication: NEURALGIA
  3. OMEPRAZOLE [Concomitant]
  4. CORTISONE ACETATE [Concomitant]

REACTIONS (2)
  - HEPATIC ENZYME INCREASED [None]
  - HEPATOTOXICITY [None]
